FAERS Safety Report 7088260-2 (Version None)
Quarter: 2010Q4

REPORT INFORMATION
  Report Type: 
  Country: None (occurrence: None)
  Receive Date: 20101108
  Receipt Date: 20101014
  Transmission Date: 20110411
  Serious: Yes (Hospitalization, Other)
  Sender: FDA-Public Use
  Company Number: US-BAYER-201016000NA

PATIENT
  Age: 27 Year
  Sex: Female
  Weight: 109 kg

DRUGS (2)
  1. YASMIN [Suspect]
     Indication: CONTRACEPTION
     Route: 048
     Dates: start: 20010101, end: 20060101
  2. ADVIL [Concomitant]
     Dosage: AS NEEDED

REACTIONS (1)
  - BILIARY COLIC [None]
